FAERS Safety Report 9953401 (Version 1)
Quarter: 2014Q1

REPORT INFORMATION
  Report Type: Report from Study
  Country: US (occurrence: US)
  Receive Date: 20140304
  Receipt Date: 20140304
  Transmission Date: 20141002
  Serious: No
  Sender: FDA-Public Use
  Company Number: US-ABBVIE-13P-163-1076034-00

PATIENT
  Age: 43 Year
  Sex: Female

DRUGS (9)
  1. HUMIRA [Suspect]
     Indication: RHEUMATOID ARTHRITIS
  2. HUMIRA [Suspect]
     Indication: RHEUMATOID ARTHRITIS
     Dates: start: 20130313
  3. TOPROL [Concomitant]
     Indication: HYPERTENSION
  4. CHLORTHALIDONE [Concomitant]
     Indication: HYPERTENSION
  5. ZYRTEC [Concomitant]
     Indication: HYPERSENSITIVITY
  6. SULFAZINE [Concomitant]
     Indication: RHEUMATOID ARTHRITIS
  7. FENTANYL [Concomitant]
     Indication: PAIN
  8. HYDROCODONE [Concomitant]
     Indication: PAIN
     Dosage: 7.5/325 MG, EVERY 6 HOURS, AS REQUIRED
  9. LUNESTA [Concomitant]
     Indication: INSOMNIA

REACTIONS (6)
  - Wrong technique in drug usage process [Recovered/Resolved]
  - Injection site pain [Recovered/Resolved]
  - Injection site pain [Recovered/Resolved]
  - Wrong technique in drug usage process [Recovered/Resolved]
  - Incorrect dose administered [Recovered/Resolved]
  - Injection site pain [Recovered/Resolved]
